FAERS Safety Report 4274428-7 (Version None)
Quarter: 2004Q1

REPORT INFORMATION
  Report Type: 
  Country: None (occurrence: None)
  Receive Date: 20040120
  Receipt Date: 20021202
  Transmission Date: 20041129
  Serious: No
  Sender: FDA-Public Use
  Company Number: US-BRISTOL-MYERS SQUIBB COMPANY-12126447

PATIENT
  Sex: Male

DRUGS (1)
  1. IFOSFAMIDE [Suspect]
     Route: 061

REACTIONS (1)
  - ACCIDENTAL EXPOSURE [None]
